FAERS Safety Report 20129580 (Version 3)
Quarter: 2022Q4

REPORT INFORMATION
  Report Type: Spontaneous
  Country: JP (occurrence: JP)
  Receive Date: 20211130
  Receipt Date: 20221025
  Transmission Date: 20230113
  Serious: Yes (Death, Hospitalization, Other)
  Sender: FDA-Public Use
  Company Number: JP-INSMED INCORPORATED-2021-09176-JPAA

PATIENT
  Age: 81 Year
  Sex: Female

DRUGS (2)
  1. ARIKAYCE [Suspect]
     Active Substance: AMIKACIN
     Indication: Mycobacterium avium complex infection
     Dosage: 590 MILLIGRAM, QD
     Route: 055
     Dates: start: 20210720, end: 202109
  2. ARIKAYCE [Suspect]
     Active Substance: AMIKACIN
     Dosage: 590 UNK
     Route: 055
     Dates: start: 2021, end: 2021

REACTIONS (3)
  - Mycobacterium avium complex infection [Fatal]
  - Pneumonia [Unknown]
  - Malaise [Unknown]

NARRATIVE: CASE EVENT DATE: 20210101
